FAERS Safety Report 8357570-0 (Version None)
Quarter: 2012Q2

REPORT INFORMATION
  Report Type: 
  Country: None (occurrence: None)
  Receive Date: 20120514
  Receipt Date: 20120501
  Transmission Date: 20120825
  Serious: Yes (Other)
  Sender: FDA-Public Use
  Company Number: US-SHIRE-ALL1-2012-02208

PATIENT
  Age: 60 Year
  Sex: Female

DRUGS (2)
  1. AGRYLIN [Suspect]
     Indication: THROMBOCYTOSIS
     Dosage: 0.5 MG, 2X/DAY:BID
     Route: 065
  2. AGRYLIN [Suspect]
     Dosage: UNK UNK, 2X/DAY:BID
     Route: 065
     Dates: start: 19970101

REACTIONS (2)
  - SPLENOMEGALY [None]
  - CARDIOMYOPATHY [None]
